FAERS Safety Report 13479885 (Version 1)
Quarter: 2017Q2

REPORT INFORMATION
  Report Type: Spontaneous
  Country: JP (occurrence: JP)
  Receive Date: 20170425
  Receipt Date: 20170425
  Transmission Date: 20170830
  Serious: Yes (Other)
  Sender: FDA-Public Use
  Company Number: PHJP2017JP013875

PATIENT
  Age: 65 Year
  Sex: Female

DRUGS (1)
  1. CARBAMAZEPINE. [Suspect]
     Active Substance: CARBAMAZEPINE
     Indication: EPILEPSY
     Dosage: UNK
     Route: 048

REACTIONS (6)
  - Ascites [Recovering/Resolving]
  - Protein S deficiency [Unknown]
  - Mesenteric vein thrombosis [Recovering/Resolving]
  - Thrombosis [Recovering/Resolving]
  - Gastrointestinal oedema [Recovering/Resolving]
  - Abdominal pain [Recovering/Resolving]
